FAERS Safety Report 15265713 (Version 1)
Quarter: 2018Q3

REPORT INFORMATION
  Report Type: Spontaneous
  Country: US (occurrence: US)
  Receive Date: 20180810
  Receipt Date: 20180810
  Transmission Date: 20181010
  Serious: Yes (Other)
  Sender: FDA-Public Use
  Company Number: US-FRESENIUS KABI-FK201808615

PATIENT
  Age: 70 Year
  Sex: Male

DRUGS (1)
  1. ROPIVACAINE (MANUFACTURER UNKNOWN) [Suspect]
     Active Substance: ROPIVACAINE
     Indication: ANAESTHESIA
     Route: 065

REACTIONS (1)
  - Phrenic nerve paralysis [Recovering/Resolving]
